FAERS Safety Report 6672738-7 (Version None)
Quarter: 2010Q2

REPORT INFORMATION
  Report Type: 
  Country: None (occurrence: None)
  Receive Date: 20100406
  Receipt Date: 20100325
  Transmission Date: 20101027
  Serious: Yes (Hospitalization, Other)
  Sender: FDA-Public Use
  Company Number: AUR-APU-2010-00943

PATIENT
  Age: 36 Year
  Sex: Female

DRUGS (3)
  1. LAMOTRIGINE [Suspect]
     Indication: ANXIETY
  2. LEVOTHYROXINE [Concomitant]
  3. NORGESTIMATE AND ETHINYL ESTRADIOL [Concomitant]

REACTIONS (2)
  - HEART RATE INCREASED [None]
  - MENINGITIS ASEPTIC [None]
